FAERS Safety Report 18204984 (Version 1)
Quarter: 2020Q3

REPORT INFORMATION
  Report Type: Other
  Country: NL (occurrence: NL)
  Receive Date: 20200828
  Receipt Date: 20200828
  Transmission Date: 20201103
  Serious: Yes (Other)
  Sender: FDA-Public Use
  Company Number: NL-ROCHE-2665085

PATIENT

DRUGS (4)
  1. MYCOPHENOLATE MOFETIL. [Suspect]
     Active Substance: MYCOPHENOLATE MOFETIL
     Dosage: AFTER 1 YEAR, IN PATIENTS WHO WERE STILL IN COMPLETE REMISSION (CR), MMF WAS TAPERED BY 500 MG EVERY
     Route: 048
  2. PREDNISOLONE. [Suspect]
     Active Substance: PREDNISOLONE
     Dosage: AFTER 1 YEAR, IN PATIENTS WHO WERE STILL IN COMPLETE REMISSION (CR), PREDNISOLONE WAS TAPERED AFTER
     Route: 048
  3. MYCOPHENOLATE MOFETIL. [Suspect]
     Active Substance: MYCOPHENOLATE MOFETIL
     Indication: ANTI-NEUTROPHIL CYTOPLASMIC ANTIBODY POSITIVE VASCULITIS
     Route: 048
  4. PREDNISOLONE. [Suspect]
     Active Substance: PREDNISOLONE
     Indication: ANTI-NEUTROPHIL CYTOPLASMIC ANTIBODY POSITIVE VASCULITIS
     Dosage: MAXIMUM 60 MG.
     Route: 048

REACTIONS (10)
  - Herpes zoster [Recovered/Resolved]
  - Disturbance in attention [Unknown]
  - Pneumonia [Recovered/Resolved]
  - Herpes simplex [Recovered/Resolved]
  - Gastrointestinal disorder [Unknown]
  - Myelosuppression [Unknown]
  - Sepsis [Recovered/Resolved]
  - Epididymitis [Recovered/Resolved]
  - Device related bacteraemia [Recovered/Resolved]
  - Urinary tract infection [Recovered/Resolved]
